FAERS Safety Report 12855955 (Version 1)
Quarter: 2016Q4

REPORT INFORMATION
  Report Type: Spontaneous
  Country: US (occurrence: US)
  Receive Date: 20161018
  Receipt Date: 20161018
  Transmission Date: 20170207
  Serious: No
  Sender: FDA-Public Use
  Company Number: US-TEVA-697304USA

PATIENT
  Sex: Male

DRUGS (1)
  1. GUANFACINE. [Suspect]
     Active Substance: GUANFACINE

REACTIONS (4)
  - Motor dysfunction [Unknown]
  - Impulse-control disorder [Unknown]
  - Nervous system disorder [Unknown]
  - Drug ineffective [Unknown]
